FAERS Safety Report 5427136-0 (Version None)
Quarter: 2007Q3

REPORT INFORMATION
  Report Type: 
  Country: None (occurrence: None)
  Receive Date: 20070828
  Receipt Date: 20070821
  Transmission Date: 20080115
  Serious: Yes (Life-Threatening, Hospitalization, Other)
  Sender: FDA-Public Use
  Company Number: PHEH2007US11409

PATIENT
  Age: 48 Year
  Sex: Female

DRUGS (1)
  1. ZOMETA [Suspect]
     Dosage: UNK, UNK
     Dates: start: 20070727

REACTIONS (11)
  - BONE PAIN [None]
  - CHILLS [None]
  - CHOKING [None]
  - FEELING ABNORMAL [None]
  - GINGIVAL SWELLING [None]
  - GINGIVITIS [None]
  - HYPOAESTHESIA [None]
  - OEDEMA PERIPHERAL [None]
  - PYREXIA [None]
  - TACHYCARDIA [None]
  - TREMOR [None]
